FAERS Safety Report 19391700 (Version 1)
Quarter: 2021Q2

REPORT INFORMATION
  Report Type: Spontaneous
  Country: US (occurrence: US)
  Receive Date: 20210608
  Receipt Date: 20210608
  Transmission Date: 20210717
  Serious: No
  Sender: FDA-Public Use
  Company Number: US-GE HEALTHCARE LIFE SCIENCES-2021CSU001397

PATIENT
  Age: 32 Year
  Sex: Male
  Weight: 176 kg

DRUGS (2)
  1. OMNIPAQUE [Suspect]
     Active Substance: IOHEXOL
     Indication: COMPUTERISED TOMOGRAM
     Dosage: 93 ML, SINGLE
     Route: 042
     Dates: start: 20210316, end: 20210316
  2. OMNIPAQUE [Suspect]
     Active Substance: IOHEXOL
     Indication: PAIN

REACTIONS (1)
  - Hypersensitivity [Recovered/Resolved]

NARRATIVE: CASE EVENT DATE: 20210316
